FAERS Safety Report 22106136 (Version 1)
Quarter: 2023Q1

REPORT INFORMATION
  Report Type: Spontaneous
  Country: JP (occurrence: JP)
  Receive Date: 20230317
  Receipt Date: 20230317
  Transmission Date: 20230418
  Serious: Yes (Death, Other)
  Sender: FDA-Public Use
  Company Number: JP-SAKK-2022SA460722AA

PATIENT
  Age: 71 Year
  Sex: Male

DRUGS (4)
  1. JEVTANA [Suspect]
     Active Substance: CABAZITAXEL
     Indication: Prostate cancer
     Dosage: DAILY DOSE: 25 MG/M2 39 MG
     Route: 041
     Dates: start: 20220912, end: 20220912
  2. TAXOTERE [Suspect]
     Active Substance: DOCETAXEL
     Indication: Product used for unknown indication
     Dosage: 46 CYCLES
     Route: 041
     Dates: start: 2016
  3. PREDONINE [Concomitant]
     Active Substance: PREDNISOLONE
     Indication: Product used for unknown indication
     Dosage: 10 MG, QD
     Route: 065
     Dates: start: 2016
  4. DENOSUMAB [Concomitant]
     Active Substance: DENOSUMAB
     Indication: Product used for unknown indication
     Dosage: UNK UNK, Q4W
     Route: 065

REACTIONS (5)
  - Febrile neutropenia [Fatal]
  - Infection [Fatal]
  - Malaise [Fatal]
  - Respiratory failure [Fatal]
  - Constipation [Unknown]

NARRATIVE: CASE EVENT DATE: 20220918
